FAERS Safety Report 7117035-0 (Version None)
Quarter: 2010Q4

REPORT INFORMATION
  Report Type: 
  Country: None (occurrence: None)
  Receive Date: 20101122
  Receipt Date: 20101109
  Transmission Date: 20110411
  Serious: No
  Sender: FDA-Public Use
  Company Number: US-PFIZER INC-2010147077

PATIENT
  Sex: Female

DRUGS (2)
  1. VENLAFAXINE HCL [Suspect]
     Dosage: UNK
  2. LAMOTRIGINE [Concomitant]
     Dosage: UNK

REACTIONS (2)
  - VOMITING [None]
  - WEIGHT DECREASED [None]
